FAERS Safety Report 4480472-7 (Version None)
Quarter: 2004Q4

REPORT INFORMATION
  Report Type: 
  Country: None (occurrence: None)
  Receive Date: 20041018
  Receipt Date: 20041008
  Transmission Date: 20050328
  Serious: Yes (Hospitalization)
  Sender: FDA-Public Use
  Company Number: S04-USA-06519-01

PATIENT
  Age: 88 Year
  Sex: Female

DRUGS (10)
  1. NAMENDA [Suspect]
     Indication: DEMENTIA
     Dosage: 5 MG QD PO
     Route: 048
     Dates: start: 20040801, end: 20040101
  2. NAMENDA [Suspect]
     Indication: DEMENTIA
     Dosage: 5 MG BID PO
     Route: 048
     Dates: start: 20040101, end: 20040101
  3. NAMENDA [Suspect]
     Indication: DEMENTIA
     Dosage: 15 MG QD PO
     Route: 048
     Dates: start: 20040101, end: 20040101
  4. NAMENDA [Suspect]
     Indication: DEMENTIA
     Dosage: 10 MG BID PO
     Route: 048
     Dates: start: 20040101, end: 20040929
  5. ARICEPT [Concomitant]
  6. ADVAIR DISKUS 100/50 [Concomitant]
  7. ALBUTEROL [Concomitant]
  8. SYNTHROID [Concomitant]
  9. AMBIEN [Concomitant]
  10. AMIODARONE HCL [Concomitant]

REACTIONS (9)
  - ASTHENIA [None]
  - BRONCHITIS [None]
  - GAIT DISTURBANCE [None]
  - HEART RATE IRREGULAR [None]
  - HYPOXIA [None]
  - MASKED FACIES [None]
  - PARKINSON'S DISEASE [None]
  - SYNCOPE [None]
  - TREMOR [None]
